FAERS Safety Report 9427893 (Version 1)
Quarter: 2013Q3

REPORT INFORMATION
  Report Type: Spontaneous
  Country: BE (occurrence: BE)
  Receive Date: 20130730
  Receipt Date: 20130730
  Transmission Date: 20140515
  Serious: Yes (Other)
  Sender: FDA-Public Use
  Company Number: BE-PFIZER INC-2013220244

PATIENT
  Age: 78 Year
  Sex: 0

DRUGS (5)
  1. CORDARONE [Suspect]
     Dosage: 200 MG, UNSPECIFIED DAILY DOSAGE
     Route: 048
     Dates: start: 2010
  2. FORZATEN [Concomitant]
     Dosage: UNK
     Dates: start: 2010
  3. LIPITOR [Concomitant]
     Dosage: UNK
     Dates: start: 2008
  4. EMCONCOR [Concomitant]
     Dosage: UNK
     Dates: start: 2011
  5. SINTROM [Concomitant]
     Dosage: UNK
     Dates: start: 2010

REACTIONS (1)
  - Polyneuropathy [Not Recovered/Not Resolved]
